FAERS Safety Report 11589216 (Version 1)
Quarter: 2015Q4

REPORT INFORMATION
  Report Type: Spontaneous
  Country: US (occurrence: US)
  Receive Date: 20151002
  Receipt Date: 20151002
  Transmission Date: 20160304
  Serious: No
  Sender: FDA-Public Use
  Company Number: US-BAYER-2015-435575

PATIENT
  Age: 64 Year
  Sex: Female
  Weight: 72.56 kg

DRUGS (1)
  1. OXYTROL FOR WOMEN [Suspect]
     Active Substance: OXYBUTYNIN
     Indication: HYPERTONIC BLADDER
     Dosage: 1 DF, USE ONE PATCH FOR FOUR DAYS, REMOVE, AND PLACE ANOTHER PATCH IN A NEW AREA
     Route: 061
     Dates: start: 20150923

REACTIONS (3)
  - Expired product administered [None]
  - Application site erythema [Not Recovered/Not Resolved]
  - Drug ineffective [None]
